FAERS Safety Report 12740117 (Version 1)
Quarter: 2016Q3

REPORT INFORMATION
  Report Type: Report from Study
  Country: US (occurrence: US)
  Receive Date: 20160913
  Receipt Date: 20160913
  Transmission Date: 20161109
  Serious: Yes (Hospitalization)
  Sender: FDA-Public Use
  Company Number: US-ABBVIE-16K-163-1693961-00

PATIENT
  Sex: Female
  Weight: 111.68 kg

DRUGS (3)
  1. VITAMIN B12 [Concomitant]
     Active Substance: CYANOCOBALAMIN
     Indication: VITAMIN SUPPLEMENTATION
  2. MULTIVITAMIN [Concomitant]
     Active Substance: VITAMINS
     Indication: VITAMIN SUPPLEMENTATION
  3. HUMIRA [Suspect]
     Active Substance: ADALIMUMAB
     Indication: CROHN^S DISEASE
     Route: 058
     Dates: start: 201206, end: 20160705

REACTIONS (4)
  - Diaphragmatic hernia [Recovered/Resolved]
  - Gastrectomy [Recovering/Resolving]
  - Abdominal pain [Recovered/Resolved]
  - Gallbladder non-functioning [Unknown]

NARRATIVE: CASE EVENT DATE: 2016
